FAERS Safety Report 5171111-0 (Version None)
Quarter: 2006Q4

REPORT INFORMATION
  Report Type: 
  Country: None (occurrence: None)
  Receive Date: 20061206
  Receipt Date: 20061206
  Transmission Date: 20070319
  Serious: Yes (Life-Threatening)
  Sender: FDA-Public Use
  Company Number: None

PATIENT
  Age: 57 Year
  Sex: Female
  Weight: 94.9 kg

DRUGS (4)
  1. CETACAINE              CETYLITE [Suspect]
     Indication: ANAESTHETIC PREMEDICATION
     Dosage: SPRAY ONCE  OROPHARINGE
     Route: 049
     Dates: start: 20061201, end: 20061201
  2. CETACAINE              CETYLITE [Suspect]
     Indication: ECHOCARDIOGRAM
     Dosage: SPRAY ONCE  OROPHARINGE
     Route: 049
     Dates: start: 20061201, end: 20061201
  3. LIDOCAINE [Suspect]
     Indication: ANAESTHETIC PREMEDICATION
     Dosage: GARGLE  ONCE  OROPHARING
     Route: 049
     Dates: start: 20061201, end: 20061201
  4. LIDOCAINE [Suspect]
     Indication: ECHOCARDIOGRAM
     Dosage: GARGLE  ONCE  OROPHARING
     Route: 049
     Dates: start: 20061201, end: 20061201

REACTIONS (4)
  - BLOOD METHAEMOGLOBIN PRESENT [None]
  - CYANOSIS [None]
  - OXYGEN SATURATION DECREASED [None]
  - THERAPY NON-RESPONDER [None]
